FAERS Safety Report 4331107-5 (Version None)
Quarter: 2004Q1

REPORT INFORMATION
  Report Type: 
  Country: None (occurrence: None)
  Receive Date: 20040331
  Receipt Date: 20040322
  Transmission Date: 20041129
  Serious: Yes (Death)
  Sender: FDA-Public Use
  Company Number: MEDI-0001393

PATIENT
  Age: 4 Month
  Sex: Male
  Weight: 5.4432 kg

DRUGS (6)
  1. SYNAGIS [Suspect]
     Indication: ANTIVIRAL PROPHYLAXIS
     Dosage: SEE IMAGE
     Route: 030
     Dates: start: 20031201, end: 20031229
  2. SYNAGIS [Suspect]
     Indication: PREMATURE BABY
     Dosage: SEE IMAGE
     Route: 030
     Dates: start: 20031201, end: 20031229
  3. SYNAGIS [Suspect]
     Indication: ANTIVIRAL PROPHYLAXIS
     Dosage: SEE IMAGE
     Route: 030
     Dates: start: 20031201
  4. SYNAGIS [Suspect]
     Indication: PREMATURE BABY
     Dosage: SEE IMAGE
     Route: 030
     Dates: start: 20031201
  5. DEPTACEL (DIPHTHERIA AND TETANUS TOXOIDS AND PERTUSSIS [Concomitant]
  6. ACT HIB (HAEMOPHILLUS INFLUENZA B AND HEPATITIS B VACC.) [Concomitant]

REACTIONS (1)
  - SUDDEN INFANT DEATH SYNDROME [None]
